FAERS Safety Report 7495019-0 (Version None)
Quarter: 2011Q2

REPORT INFORMATION
  Report Type: 
  Country: None (occurrence: None)
  Receive Date: 20110520
  Receipt Date: 20110516
  Transmission Date: 20111010
  Serious: Yes (Hospitalization, Other)
  Sender: FDA-Public Use
  Company Number: US-ELI_LILLY_AND_COMPANY-US201002003676

PATIENT
  Sex: Female
  Weight: 83.447 kg

DRUGS (15)
  1. LANTUS [Concomitant]
     Dosage: UNK
  2. LEXAPRO [Concomitant]
     Indication: DEPRESSION
  3. ANTACID TAB [Concomitant]
     Dosage: UNK, PRN
     Dates: start: 20000101
  4. ACETAMINOPHEN [Concomitant]
     Indication: HEADACHE
     Dosage: UNK, PRN
     Dates: start: 20000101
  5. METFORMIN HCL [Concomitant]
     Indication: DIABETES MELLITUS
     Dosage: UNK
     Dates: start: 20051005
  6. GLYBURIDE [Concomitant]
     Indication: DIABETES MELLITUS
     Dosage: UNK
  7. INSULIN [Concomitant]
     Dosage: UNK
     Dates: start: 20040101, end: 20091231
  8. FERROUS SULFATE TAB [Concomitant]
     Dosage: UNK
     Dates: start: 20060101
  9. ASPIRIN [Concomitant]
     Dosage: 81 MG, QD
  10. SINGULAIR [Concomitant]
     Dosage: 10 MG, QD
  11. BYETTA [Suspect]
     Dosage: UNK, UNKNOWN
     Route: 065
     Dates: start: 20050601, end: 20060901
  12. LOTENSIN [Concomitant]
     Dosage: 20 MG, QD
  13. CRESTOR [Concomitant]
     Dosage: 10 MG, QD
  14. NOVOLOG [Concomitant]
  15. LOPRESSOR [Concomitant]
     Dosage: 50 MG, BID

REACTIONS (4)
  - CORONARY ARTERY OCCLUSION [None]
  - OFF LABEL USE [None]
  - PANCREATITIS [None]
  - WEIGHT DECREASED [None]
